FAERS Safety Report 24010264 (Version 4)
Quarter: 2024Q4

REPORT INFORMATION
  Report Type: Spontaneous
  Country: US (occurrence: US)
  Receive Date: 20240625
  Receipt Date: 20241230
  Transmission Date: 20250115
  Serious: Yes (Other)
  Sender: PFIZER
  Company Number: US-PFIZER INC-PV202400081221

PATIENT
  Age: 83 Year
  Sex: Male
  Weight: 85.3 kg

DRUGS (8)
  1. VYNDAMAX [Suspect]
     Active Substance: TAFAMIDIS
     Indication: Cardiac amyloidosis
     Dosage: TAKE 1 TABLET BY MOUTH 1 (ONE) TIME EACH DAY.
     Route: 048
  2. VYNDAMAX [Suspect]
     Active Substance: TAFAMIDIS
     Indication: Amyloidosis
  3. ELIQUIS [Suspect]
     Active Substance: APIXABAN
     Dosage: UNK
  4. LEVOXYL [Concomitant]
     Active Substance: LEVOTHYROXINE SODIUM
     Dosage: 75 UG, 1X/DAY (TAKE BEFORE MEALS, TAKE 1 DAILY MONDAY-SATURDAY)
     Route: 048
  5. LEVOXYL [Concomitant]
     Active Substance: LEVOTHYROXINE SODIUM
     Dosage: 112.5 UG, 1X/DAY (ON SUNDAY TAKE 1 1/2)
     Route: 048
  6. NEURONTIN [Concomitant]
     Active Substance: GABAPENTIN
     Dosage: TAKE 1 CAPSULE (300 MG) BY MOUTH ONCE DAILY AT BEDTIME
     Route: 048
  7. SYNTHROID [Concomitant]
     Active Substance: LEVOTHYROXINE SODIUM
     Dosage: 75 UG, 1X/DAY (TAKE BEFORE MEALS, TAKE 1 DAILY MONDAY-SATURDAY)
     Route: 048
  8. SYNTHROID [Concomitant]
     Active Substance: LEVOTHYROXINE SODIUM
     Dosage: 112.5 UG, 1X/DAY(ON SUNDAY TAKE 1 1/2)
     Route: 048

REACTIONS (9)
  - Pulmonary embolism [Unknown]
  - Haemoglobin decreased [Unknown]
  - Haematocrit decreased [Unknown]
  - Platelet count decreased [Unknown]
  - Blood triglycerides increased [Unknown]
  - High density lipoprotein abnormal [Unknown]
  - Blood glucose increased [Unknown]
  - Blood urea increased [Unknown]
  - Glomerular filtration rate abnormal [Unknown]

NARRATIVE: CASE EVENT DATE: 20200226
